FAERS Safety Report 21836384 (Version 4)
Quarter: 2024Q2

REPORT INFORMATION
  Report Type: Report from Study
  Country: CA (occurrence: None)
  Receive Date: 20230109
  Receipt Date: 20240521
  Transmission Date: 20240716
  Serious: Yes (Other)
  Sender: FDA-Public Use
  Company Number: CA-PFIZER INC-202300002146

PATIENT
  Age: 64 Year
  Sex: Female

DRUGS (18)
  1. METHOTREXATE [Suspect]
     Active Substance: METHOTREXATE
     Indication: Product used for unknown indication
  2. METHOTREXATE [Suspect]
     Active Substance: METHOTREXATE
  3. METHOTREXATE [Suspect]
     Active Substance: METHOTREXATE
  4. METHOTREXATE [Suspect]
     Active Substance: METHOTREXATE
  5. METHOTREXATE [Suspect]
     Active Substance: METHOTREXATE
  6. CYCLOSPORINE [Suspect]
     Active Substance: CYCLOSPORINE
     Indication: Product used for unknown indication
  7. CYCLOSPORINE [Suspect]
     Active Substance: CYCLOSPORINE
  8. SECUKINUMAB [Suspect]
     Active Substance: SECUKINUMAB
     Indication: Psoriasis
  9. SECUKINUMAB [Suspect]
     Active Substance: SECUKINUMAB
  10. SECUKINUMAB [Suspect]
     Active Substance: SECUKINUMAB
  11. COSENTYX [Suspect]
     Active Substance: SECUKINUMAB
     Indication: Psoriasis
  12. COSENTYX [Suspect]
     Active Substance: SECUKINUMAB
  13. COSENTYX [Suspect]
     Active Substance: SECUKINUMAB
  14. COSENTYX [Suspect]
     Active Substance: SECUKINUMAB
  15. BETAMETHASONE DIPROPIONATE\CALCIPOTRIENE [Concomitant]
     Active Substance: BETAMETHASONE DIPROPIONATE\CALCIPOTRIENE
  16. FOLIC ACID [Concomitant]
     Active Substance: FOLIC ACID
  17. FOLIC ACID [Concomitant]
     Active Substance: FOLIC ACID
  18. FOLIC ACID [Concomitant]
     Active Substance: FOLIC ACID

REACTIONS (4)
  - Drug ineffective [Unknown]
  - Inappropriate schedule of product administration [Unknown]
  - Abdominal discomfort [Unknown]
  - Pulmonary congestion [Unknown]
